FAERS Safety Report 8542587-3 (Version None)
Quarter: 2012Q3

REPORT INFORMATION
  Report Type: 
  Country: None (occurrence: None)
  Receive Date: 20120726
  Receipt Date: 20120713
  Transmission Date: 20120928
  Serious: Yes (Hospitalization)
  Sender: FDA-Public Use
  Company Number: GB-MYLANLABS-2012S1014339

PATIENT
  Sex: Female

DRUGS (16)
  1. PROPRANOLOL [Suspect]
     Indication: PRODUCT USED FOR UNKNOWN INDICATION
  2. PAROXETINE HYDROCHLORIDE [Suspect]
     Route: 048
  3. OMEPRAZOLE [Concomitant]
     Indication: PRODUCT USED FOR UNKNOWN INDICATION
  4. BECONASE [Concomitant]
     Indication: PRODUCT USED FOR UNKNOWN INDICATION
  5. BENDROFLUMETHIAZIDE [Concomitant]
     Indication: PRODUCT USED FOR UNKNOWN INDICATION
  6. FENOFIBRATE [Concomitant]
     Indication: PRODUCT USED FOR UNKNOWN INDICATION
  7. RAMIPRIL [Concomitant]
     Indication: PRODUCT USED FOR UNKNOWN INDICATION
  8. LORAZEPAM [Suspect]
     Indication: PRODUCT USED FOR UNKNOWN INDICATION
  9. METOCLOPRAMIDE [Suspect]
     Indication: PRODUCT USED FOR UNKNOWN INDICATION
  10. MIRTAZAPINE [Suspect]
  11. MIRTAZAPINE [Suspect]
     Indication: PRODUCT USED FOR UNKNOWN INDICATION
  12. PAROXETINE HYDROCHLORIDE [Suspect]
     Indication: DEPRESSION
     Route: 048
     Dates: start: 20111101
  13. TETRABENAZINE [Suspect]
     Indication: PRODUCT USED FOR UNKNOWN INDICATION
  14. ACRIVASTINE [Concomitant]
     Indication: PRODUCT USED FOR UNKNOWN INDICATION
  15. PAROXETINE HYDROCHLORIDE [Suspect]
     Route: 048
     Dates: start: 20111101
  16. ATORVASTATIN [Concomitant]
     Indication: PRODUCT USED FOR UNKNOWN INDICATION

REACTIONS (5)
  - EATING DISORDER [None]
  - FALL [None]
  - HALLUCINATION [None]
  - AKATHISIA [None]
  - MUSCLE CONTRACTIONS INVOLUNTARY [None]
